FAERS Safety Report 15363903 (Version 1)
Quarter: 2018Q3

REPORT INFORMATION
  Report Type: Spontaneous
  Country: US (occurrence: US)
  Receive Date: 20180831
  Receipt Date: 20180831
  Transmission Date: 20181010
  Serious: Yes (Hospitalization)
  Sender: FDA-Public Use
  Company Number: None

PATIENT
  Age: 42 Year
  Sex: Female
  Weight: 81.65 kg

DRUGS (1)
  1. FLEBOGAMMA 5% [Suspect]
     Active Substance: HUMAN IMMUNOGLOBULIN G
     Indication: IMMUNODEFICIENCY COMMON VARIABLE
     Route: 042
     Dates: start: 20180829

REACTIONS (2)
  - Chest discomfort [None]
  - Respiratory distress [None]

NARRATIVE: CASE EVENT DATE: 20180829
